FAERS Safety Report 14342914 (Version 1)
Quarter: 2017Q4

REPORT INFORMATION
  Report Type: Spontaneous
  Country: US (occurrence: US)
  Receive Date: 20171230
  Receipt Date: 20171230
  Transmission Date: 20180321
  Serious: Yes (Other)
  Sender: FDA-Public Use
  Company Number: None

PATIENT
  Age: 31 Year
  Sex: Female
  Weight: 49.5 kg

DRUGS (3)
  1. D-MANNOSE + CRANBERRY [Concomitant]
  2. DAILY MULTIVITAMIN [Concomitant]
     Active Substance: VITAMINS
  3. LEVOFLOXACIN. [Suspect]
     Active Substance: LEVOFLOXACIN
     Indication: SINUSITIS
     Dosage: ?          QUANTITY:1 TABLET(S);?
     Route: 048

REACTIONS (7)
  - Middle insomnia [None]
  - Anxiety [None]
  - Feeling jittery [None]
  - Panic attack [None]
  - Product substitution issue [None]
  - Palpitations [None]
  - Hyperhidrosis [None]

NARRATIVE: CASE EVENT DATE: 20171230
